FAERS Safety Report 6026373-4 (Version None)
Quarter: 2009Q1

REPORT INFORMATION
  Report Type: 
  Country: None (occurrence: None)
  Receive Date: 20090102
  Receipt Date: 20081223
  Transmission Date: 20090719
  Serious: Yes (Other)
  Sender: FDA-Public Use
  Company Number: PHHY2008CA33266

PATIENT

DRUGS (2)
  1. DIOVAN [Suspect]
     Indication: HYPERTENSION
     Dosage: 80 MG, QD
  2. BETA BLOCKING AGENTS [Concomitant]
     Indication: HYPERTENSION

REACTIONS (1)
  - MYOCARDIAL INFARCTION [None]
